FAERS Safety Report 8243119-X (Version None)
Quarter: 2012Q1

REPORT INFORMATION
  Report Type: 
  Country: None (occurrence: None)
  Receive Date: 20120314
  Receipt Date: 20100527
  Transmission Date: 20120608
  Serious: Yes (Other)
  Sender: FDA-Public Use
  Company Number: PHHY2010US24808

PATIENT
  Age: 62 Year
  Sex: Female
  Weight: 65.9 kg

DRUGS (2)
  1. PROZAC [Concomitant]
  2. FANAPT [Suspect]
     Indication: MENTAL DISORDER
     Dosage: 6MG,, ORAL
     Route: 048
     Dates: start: 20100325, end: 20100329

REACTIONS (3)
  - DYSARTHRIA [None]
  - TACHYCARDIA [None]
  - PALPITATIONS [None]
